FAERS Safety Report 18513857 (Version 1)
Quarter: 2020Q4

REPORT INFORMATION
  Report Type: Spontaneous
  Country: US (occurrence: US)
  Receive Date: 20201118
  Receipt Date: 20201118
  Transmission Date: 20210114
  Serious: Yes (Other)
  Sender: FDA-Public Use
  Company Number: US-AMGEN-USASP2020185299

PATIENT
  Age: 40 Year
  Sex: Male

DRUGS (5)
  1. BUSULFAN. [Concomitant]
     Active Substance: BUSULFAN
     Dosage: UNK
     Dates: start: 2004
  2. FILGRASTIM [Suspect]
     Active Substance: FILGRASTIM
     Indication: HAEMATOPOIETIC STEM CELL MOBILISATION
     Dosage: 10 MICROGRAM/KILOGRAM, QD
     Route: 065
  3. IDARUBICIN [Concomitant]
     Active Substance: IDARUBICIN
  4. ETOPOSIDE. [Concomitant]
     Active Substance: ETOPOSIDE
  5. CYTARABINE. [Concomitant]
     Active Substance: CYTARABINE

REACTIONS (1)
  - Leukaemia cutis [Recovered/Resolved]
